FAERS Safety Report 10171837 (Version 1)
Quarter: 2014Q2

REPORT INFORMATION
  Report Type: Spontaneous
  Country: US (occurrence: None)
  Receive Date: 20140428
  Receipt Date: 20140428
  Transmission Date: 20141212
  Serious: No
  Sender: FDA-Public Use
  Company Number: PHEH2013US026390

PATIENT
  Age: 63 Year
  Sex: Female
  Weight: 72.1 kg

DRUGS (16)
  1. GILENYA (FINGOLIMOD) UNKNOWN [Suspect]
     Indication: MULTIPLE SCLEROSIS
     Dosage: ORAL
     Route: 048
     Dates: start: 2010, end: 2010
  2. AMPYRA (FAMPRIDINE) TABLET, 10MG [Suspect]
     Indication: MULTIPLE SCLEROSIS
     Dates: start: 2012
  3. BACLOFEN (BACLOFEN) [Concomitant]
  4. FLOMAX//TAMSULOSIN HYDROCHLORIDE (TAMSULOSIN HYDROCHLORIDE) [Concomitant]
  5. ASA (ACETYLSALICYLIC ACID) [Concomitant]
  6. POTASSIUM (POTASSIUM) [Concomitant]
  7. VITAMIN B COMPLEX (VITAMIN B COMPLEX) [Concomitant]
  8. NORVASC (AMLODIPINE BESILATE) [Concomitant]
  9. COZAAR (LOSARTAN POTASSIUM) (50 MILLIGRAM, TABLETS) (LOSARTAN POTASSIUM) [Concomitant]
  10. HYDROCHLOROTHIAZIDE (HYDROCHLOROTHIAZIDE) [Concomitant]
  11. MORPHINE SULFATE (MORPHINE SULFATE) INJECTION [Concomitant]
  12. MIRALAX (MACROGOL) [Concomitant]
  13. COLACE (DOCUSATE SODIUM) [Concomitant]
  14. DEXILANT (DEXLANSOPRAZOLE) [Concomitant]
  15. VITAMIN D (ERGOCALCIFEROL) [Concomitant]
  16. ADDERALL (AMFETAMINE ASPARATE, AMFETAMINE SULFATE, DEXAMFETAMINE SACCHARATE, DEXAMFETAMINE SULFATE) [Concomitant]

REACTIONS (2)
  - Feeling hot [None]
  - T-lymphocyte count decreased [None]
